FAERS Safety Report 19794915 (Version 1)
Quarter: 2021Q3

REPORT INFORMATION
  Report Type: Spontaneous
  Country: US (occurrence: US)
  Receive Date: 20210907
  Receipt Date: 20210907
  Transmission Date: 20211014
  Serious: Yes (Other)
  Sender: FDA-Public Use
  Company Number: US-JIANGSU HENGRUI MEDICINE CO., LTD.-2118041

PATIENT
  Age: 60 Year
  Sex: Male

DRUGS (7)
  1. PROPOFOL. [Concomitant]
     Active Substance: PROPOFOL
  2. MIDAZOLAM. [Concomitant]
     Active Substance: MIDAZOLAM
  3. CISATRACURIUM BESYLATE INJECTION USP, 20 MG/10 ML (2 MG/ML) MULTI?DOSE [Suspect]
     Active Substance: CISATRACURIUM BESYLATE
     Indication: INDUCTION OF ANAESTHESIA
     Route: 041
  4. FENTANYL. [Concomitant]
     Active Substance: FENTANYL
  5. DEXMEDETOMIDINE. [Concomitant]
     Active Substance: DEXMEDETOMIDINE
  6. DEXAMETHASONE. [Concomitant]
     Active Substance: DEXAMETHASONE
  7. REMDESIVIR. [Concomitant]
     Active Substance: REMDESIVIR

REACTIONS (1)
  - Hyperthermia malignant [Recovering/Resolving]
